FAERS Safety Report 11772990 (Version 1)
Quarter: 2015Q4

REPORT INFORMATION
  Report Type: Report from Study
  Country: BR (occurrence: BR)
  Receive Date: 20151124
  Receipt Date: 20151124
  Transmission Date: 20160304
  Serious: Yes (Other)
  Sender: FDA-Public Use
  Company Number: PHHY2015BR153083

PATIENT
  Sex: Male
  Weight: 83 kg

DRUGS (2)
  1. SANDOSTATIN LAR DEPOT [Suspect]
     Active Substance: OCTREOTIDE ACETATE
     Indication: THYROID ADENOMA
     Dosage: 10 MG, QMO
     Route: 030
     Dates: start: 2008
  2. SANDOSTATIN LAR DEPOT [Suspect]
     Active Substance: OCTREOTIDE ACETATE
     Dosage: 20 MG, QMO
     Route: 030
     Dates: start: 2015

REACTIONS (3)
  - Hormone level abnormal [Unknown]
  - Pituitary tumour [Unknown]
  - Off label use [Unknown]
